FAERS Safety Report 6398582-6 (Version None)
Quarter: 2009Q4

REPORT INFORMATION
  Report Type: 
  Country: None (occurrence: None)
  Receive Date: 20091013
  Receipt Date: 20091009
  Transmission Date: 20100525
  Serious: Yes (Other)
  Sender: FDA-Public Use
  Company Number: US-CUBIST-2009S1000449

PATIENT

DRUGS (4)
  1. CUBICIN [Suspect]
     Indication: STAPHYLOCOCCAL BACTERAEMIA
  2. CUBICIN [Suspect]
     Indication: GRAFT INFECTION
  3. NAFCILLIN [Suspect]
     Indication: STAPHYLOCOCCAL BACTERAEMIA
  4. NAFCILLIN [Suspect]
     Indication: GRAFT INFECTION

REACTIONS (2)
  - EOSINOPHILIA [None]
  - RESPIRATORY FAILURE [None]
